FAERS Safety Report 6233226-5 (Version None)
Quarter: 2009Q2

REPORT INFORMATION
  Report Type: 
  Country: None (occurrence: None)
  Receive Date: 20090617
  Receipt Date: 20090609
  Transmission Date: 20091009
  Serious: Yes (Hospitalization, Other)
  Sender: FDA-Public Use
  Company Number: PHHY2009AU19504

PATIENT
  Sex: Female

DRUGS (4)
  1. ACLASTA [Suspect]
     Indication: OSTEOPOROSIS
     Dosage: 3 MG STAT
     Route: 042
     Dates: start: 20090324
  2. PANTOPRAZOLE SODIUM [Concomitant]
     Dosage: 40 MG DAILY
     Dates: start: 20080901
  3. PERINDOPRIL ERBUMINE [Concomitant]
     Dosage: 5 MG DAILY
  4. FRUSEMIDE [Concomitant]
     Dosage: 40 MG, BID

REACTIONS (4)
  - FALL [None]
  - HYPOCALCAEMIA [None]
  - PAIN [None]
  - VITAMIN D DEFICIENCY [None]
